FAERS Safety Report 21971878 (Version 3)
Quarter: 2024Q1

REPORT INFORMATION
  Report Type: Spontaneous
  Country: US (occurrence: US)
  Receive Date: 20230209
  Receipt Date: 20240203
  Transmission Date: 20240410
  Serious: No
  Sender: FDA-Public Use
  Company Number: US-Ipsen Biopharmaceuticals, Inc.-2023-02221

PATIENT
  Sex: Male

DRUGS (8)
  1. SOMATULINE DEPOT [Suspect]
     Active Substance: LANREOTIDE ACETATE
     Indication: Carcinoid tumour
     Dosage: 120 MG 0.5 ML INJECT ONE SYRINGE UNDER THE SKIN EVERY 28 DAYS
     Route: 058
     Dates: start: 20221231
  2. ERYTHROMYCIN [Concomitant]
     Active Substance: ERYTHROMYCIN
  3. ATIVAN [Concomitant]
     Active Substance: LORAZEPAM
  4. CYCLOBENZAPRINE [Concomitant]
     Active Substance: CYCLOBENZAPRINE
  5. IBUPROFEN [Concomitant]
     Active Substance: IBUPROFEN
  6. OMEPRAZOLE [Concomitant]
     Active Substance: OMEPRAZOLE
  7. PEPCID [Concomitant]
     Active Substance: FAMOTIDINE
  8. ZENTAC 360 [Concomitant]

REACTIONS (1)
  - Diarrhoea [Unknown]
